FAERS Safety Report 7074087-4 (Version None)
Quarter: 2010Q4

REPORT INFORMATION
  Report Type: 
  Country: None (occurrence: None)
  Receive Date: 20101029
  Receipt Date: 20101019
  Transmission Date: 20110411
  Serious: Yes (Life-Threatening)
  Sender: FDA-Public Use
  Company Number: ES-PFIZER INC-2010132829

PATIENT
  Age: 35 Year
  Sex: Female

DRUGS (3)
  1. TRANKIMAZIN [Suspect]
     Indication: DEPRESSION
     Dosage: 0.25MG DAILY
     Route: 048
  2. DIAZEPAM [Interacting]
     Indication: ANXIETY
     Dosage: UNK
     Route: 048
  3. CITALOPRAM [Interacting]
     Indication: DEPRESSION
     Dosage: 20MG DAILY
     Route: 048

REACTIONS (2)
  - DRUG INTERACTION [None]
  - SUICIDE ATTEMPT [None]
